FAERS Safety Report 9796245 (Version 1)
Quarter: 2014Q1

REPORT INFORMATION
  Report Type: Spontaneous
  Country: US (occurrence: US)
  Receive Date: 20140103
  Receipt Date: 20140103
  Transmission Date: 20141002
  Serious: Yes (Other)
  Sender: FDA-Public Use
  Company Number: US-JNJFOC-20131218033

PATIENT
  Sex: Female
  Weight: 86.18 kg

DRUGS (1)
  1. ELMIRON [Suspect]
     Indication: CYSTITIS INTERSTITIAL
     Route: 048
     Dates: start: 201009

REACTIONS (3)
  - Bronchitis chronic [Not Recovered/Not Resolved]
  - Bronchitis [Unknown]
  - Asthma [Not Recovered/Not Resolved]
